FAERS Safety Report 16462462 (Version 1)
Quarter: 2019Q2

REPORT INFORMATION
  Report Type: Spontaneous
  Country: US (occurrence: US)
  Receive Date: 20190621
  Receipt Date: 20190621
  Transmission Date: 20190711
  Serious: Yes (Life-Threatening, Hospitalization, Other)
  Sender: FDA-Public Use
  Company Number: US-ACCORD-133868

PATIENT
  Age: 26 Year
  Sex: Male

DRUGS (7)
  1. VALPROIC ACID. [Concomitant]
     Active Substance: VALPROIC ACID
  2. TRAZODONE [Concomitant]
     Active Substance: TRAZODONE HYDROCHLORIDE
  3. CLOZAPINE. [Suspect]
     Active Substance: CLOZAPINE
     Indication: PRODUCT USED FOR UNKNOWN INDICATION
  4. LITHIUM. [Concomitant]
     Active Substance: LITHIUM
  5. BENZATROPINE/BENZATROPINE MESILATE [Concomitant]
  6. RISPERIDONE. [Concomitant]
     Active Substance: RISPERIDONE
  7. LACOSAMIDE. [Concomitant]
     Active Substance: LACOSAMIDE

REACTIONS (6)
  - Cardiogenic shock [Recovering/Resolving]
  - Myocarditis [Recovering/Resolving]
  - Condition aggravated [Recovering/Resolving]
  - Ejection fraction decreased [Recovering/Resolving]
  - Right ventricular failure [Recovering/Resolving]
  - Bundle branch block right [Recovering/Resolving]
